FAERS Safety Report 6147792-1 (Version None)
Quarter: 2009Q2

REPORT INFORMATION
  Report Type: 
  Country: None (occurrence: None)
  Receive Date: 20090408
  Receipt Date: 20090327
  Transmission Date: 20091009
  Serious: Yes (Hospitalization)
  Sender: FDA-Public Use
  Company Number: JP-PFIZER INC-2009191454

PATIENT

DRUGS (9)
  1. SUNITINIB MALATE [Suspect]
     Indication: RENAL CELL CARCINOMA
     Dosage: 50 MG, 1X/DAY
     Dates: start: 20081202, end: 20081219
  2. SUNITINIB MALATE [Suspect]
     Dosage: 37.5 MG, 1X/DAY
     Dates: start: 20090121
  3. GLUCOBAY [Concomitant]
     Dosage: UNK
     Route: 048
     Dates: start: 20081202
  4. MYSLEE [Concomitant]
     Dosage: UNK
     Route: 048
     Dates: start: 20081202
  5. ALDACTONE [Concomitant]
     Dosage: UNK
     Route: 048
     Dates: start: 20081202
  6. DIART [Concomitant]
     Route: 048
     Dates: start: 20081202, end: 20090120
  7. CALONAL [Concomitant]
     Dosage: UNK
     Route: 048
     Dates: start: 20081202
  8. DOGMATYL [Concomitant]
     Dosage: UNK
     Route: 048
     Dates: start: 20081202
  9. ALLOPURINOL [Concomitant]
     Dosage: UNK
     Route: 048
     Dates: start: 20081202

REACTIONS (1)
  - BONE MARROW FAILURE [None]
